FAERS Safety Report 10238718 (Version 1)
Quarter: 2014Q2

REPORT INFORMATION
  Report Type: Spontaneous
  Country: US (occurrence: US)
  Receive Date: 20140616
  Receipt Date: 20140616
  Transmission Date: 20141212
  Serious: No
  Sender: FDA-Public Use
  Company Number: US-ASTRAZENECA-2014SE39627

PATIENT
  Age: 68 Year
  Sex: Female
  Weight: 81.6 kg

DRUGS (6)
  1. ZESTRIL [Suspect]
     Indication: HEADACHE
     Route: 048
     Dates: start: 2004
  2. ZESTRIL [Suspect]
     Indication: BLOOD PRESSURE ABNORMAL
     Route: 048
     Dates: start: 2004
  3. ZESTRIL [Suspect]
     Indication: HEADACHE
     Dosage: GENERIC
  4. ZESTRIL [Suspect]
     Indication: BLOOD PRESSURE ABNORMAL
     Dosage: GENERIC
  5. PROGESTERONE COMPOUND [Concomitant]
     Indication: HORMONE REPLACEMENT THERAPY
     Dates: start: 1996
  6. ESTERASE [Concomitant]
     Indication: HORMONE REPLACEMENT THERAPY
     Dates: start: 1996

REACTIONS (4)
  - Migraine [Unknown]
  - Chest pain [Unknown]
  - Drug ineffective for unapproved indication [Unknown]
  - Off label use [Unknown]
